FAERS Safety Report 9863156 (Version 3)
Quarter: 2014Q1

REPORT INFORMATION
  Report Type: Spontaneous
  Country: DE (occurrence: DE)
  Receive Date: 20140203
  Receipt Date: 20140213
  Transmission Date: 20141002
  Serious: Yes (Death, Other)
  Sender: FDA-Public Use
  Company Number: DE-GILEAD-2014-0092876

PATIENT
  Age: 77 Year
  Sex: Male
  Weight: 90 kg

DRUGS (6)
  1. AMBRISENTAN [Suspect]
     Indication: PRODUCT USED FOR UNKNOWN INDICATION
     Dosage: UNK
     Route: 048
     Dates: start: 201308
  2. ALLOPURINOL [Concomitant]
     Route: 065
  3. FOLSAN [Concomitant]
     Route: 065
  4. TORASEMID [Concomitant]
     Route: 065
  5. SPIRONOLACTON [Concomitant]
     Route: 065
  6. XIPAMIDE [Concomitant]
     Route: 065

REACTIONS (1)
  - Death [Fatal]
